FAERS Safety Report 21856506 (Version 1)
Quarter: 2023Q1

REPORT INFORMATION
  Report Type: Other
  Country: US (occurrence: None)
  Receive Date: 20230112
  Receipt Date: 20230112
  Transmission Date: 20230417
  Serious: Yes (Hospitalization, Other)
  Sender: FDA-Public Use
  Company Number: US-ROCHE-3247435

PATIENT
  Age: 66 Year
  Sex: Male
  Weight: 102.15 kg

DRUGS (17)
  1. OCREVUS [Suspect]
     Active Substance: OCRELIZUMAB
     Indication: Primary progressive multiple sclerosis
     Dosage: INFUSE 600MG PER IV EVERY 6 MONTHS. DATE OF TREATMENT : 5/24/2022, 11/16/2021, 5/14/2021, 12/3/2020,
     Route: 042
     Dates: start: 20201112
  2. CREON [Concomitant]
     Active Substance: PANCRELIPASE AMYLASE\PANCRELIPASE LIPASE\PANCRELIPASE PROTEASE
     Route: 048
  3. AMPYRA [Concomitant]
     Active Substance: DALFAMPRIDINE
     Indication: Multiple sclerosis
     Dosage: TAKE 1 TABLET (10MG TOTAL) BY MOUTH EVERY 12 HOURS.
     Route: 048
     Dates: start: 20210120
  4. OMEPRAZOLE [Concomitant]
     Active Substance: OMEPRAZOLE
     Route: 048
  5. MAGNESIUM CITRATE [Concomitant]
     Active Substance: MAGNESIUM CITRATE
     Route: 048
  6. CHOLECALCIFEROL [Concomitant]
     Active Substance: CHOLECALCIFEROL
     Dosage: TAKE 10000 UNITS BY MOUTH DAILY.
     Route: 048
  7. ASPIRIN [Concomitant]
     Active Substance: ASPIRIN
     Dosage: 81MG EC TABLET BY MOUTH DAILY
     Route: 048
  8. ALBUTEROL SULFATE [Concomitant]
     Active Substance: ALBUTEROL SULFATE
     Indication: Dyspnoea
     Dosage: INHALE 2 PUFFS INTO THE LUNGS EVERY 4 HOURS NEEDED. 90MCG/ACTUATION
     Route: 065
     Dates: start: 20190917
  9. ALBUTEROL SULFATE [Concomitant]
     Active Substance: ALBUTEROL SULFATE
     Indication: Wheezing
  10. VITAMIN B COMPLEX [Concomitant]
     Active Substance: CYANOCOBALAMIN\DEXPANTHENOL\NIACINAMIDE\PYRIDOXINE HYDROCHLORIDE\RIBOFLAVIN 5^-PHOSPHATE SODIUM\THIA
     Dosage: TAKE BY MOUTH DAILY
     Route: 048
  11. DOCONEXENT\ICOSAPENT [Concomitant]
     Active Substance: DOCONEXENT\ICOSAPENT
     Dosage: TAKE 1000 MG BY MOUTH DAILY
     Route: 048
  12. FLUTICASONE [Concomitant]
     Active Substance: FLUTICASONE
     Dosage: 50MG/ACTUATION NASAL SPRAY. 2 SPRAYS BY EACH NARE ROUTE DAILY.
     Route: 045
     Dates: start: 20191001
  13. POTASSIUM CHLORIDE [Concomitant]
     Active Substance: POTASSIUM CHLORIDE
     Dosage: TAKE 1 TABLET (20 MEQ TOTAL) BY MOUTH DAILY.
     Route: 048
     Dates: start: 20190917
  14. PREDNISONE [Concomitant]
     Active Substance: PREDNISONE
     Dosage: TAKE 3 TABS PO ONCE DAILY FOR 5 DAYS THEN 2 TABS PO FOR 3 DAYS THEN 1 TAB FOR 3 DAYS AND 1/2 TAB DAI
     Route: 048
     Dates: start: 20200514
  15. VIAGRA [Concomitant]
     Active Substance: SILDENAFIL CITRATE
     Indication: Erectile dysfunction
     Dosage: TAKE 1 TABLET (100MG) BY MOUTH DAILY AS NEEDED
     Route: 048
     Dates: start: 20200508
  16. SODIUM CHLORIDE [Concomitant]
     Active Substance: SODIUM CHLORIDE
     Dosage: INJECT 700 MG INTO THE VEIN ONCE
     Route: 042
     Dates: start: 20210119
  17. FLOMAX [Concomitant]
     Active Substance: TAMSULOSIN HYDROCHLORIDE
     Dosage: TAKE 1 CAPSULE (0.4 MG TOTAL) BY MOUTH NIGHTLY.
     Route: 048
     Dates: start: 20190917

REACTIONS (2)
  - Pneumonia [Recovered/Resolved]
  - Adenocarcinoma pancreas [Unknown]

NARRATIVE: CASE EVENT DATE: 20220501
